FAERS Safety Report 12502656 (Version 4)
Quarter: 2017Q2

REPORT INFORMATION
  Report Type: Spontaneous
  Country: AU (occurrence: AU)
  Receive Date: 20160628
  Receipt Date: 20170623
  Transmission Date: 20170830
  Serious: Yes (Life-Threatening, Hospitalization, Other)
  Sender: FDA-Public Use
  Company Number: AU-ROCHE-1783918

PATIENT
  Age: 79 Year
  Sex: Male
  Weight: 80 kg

DRUGS (13)
  1. PREDNISONE. [Concomitant]
     Active Substance: PREDNISONE
     Dosage: SYMPTOM CONTROL
     Route: 048
  2. PREDNISONE. [Concomitant]
     Active Substance: PREDNISONE
     Route: 065
  3. DICLOFENAC [Concomitant]
     Active Substance: DICLOFENAC
     Route: 048
  4. PREDNISOLONE. [Suspect]
     Active Substance: PREDNISOLONE
     Indication: PRODUCT USED FOR UNKNOWN INDICATION
     Route: 065
  5. SIMVASTATIN. [Concomitant]
     Active Substance: SIMVASTATIN
     Route: 048
  6. OMEPRAZOLE. [Concomitant]
     Active Substance: OMEPRAZOLE
     Route: 048
  7. ETANERCEPT [Concomitant]
     Active Substance: ETANERCEPT
     Dosage: ETANERCEPT 50 MG WAS STARTED ON AND THEN CEASED ON UNSPECIFIED DATE TO START CERTOLIZUMAB ON 01/MAR/
     Route: 058
     Dates: start: 201507
  8. CHOLECALCIFEROL [Concomitant]
     Active Substance: CHOLECALCIFEROL
     Dosage: CHOLECALCIFEROL 12/5 UG/CALCIUM 600 MG
     Route: 065
  9. ACTEMRA [Suspect]
     Active Substance: TOCILIZUMAB
     Indication: RHEUMATOID ARTHRITIS
     Route: 042
     Dates: start: 20160511
  10. PREDNISONE. [Concomitant]
     Active Substance: PREDNISONE
     Route: 065
  11. AMITRIPTYLIN [Concomitant]
     Active Substance: AMITRIPTYLINE
     Route: 048
  12. PREDNISONE. [Concomitant]
     Active Substance: PREDNISONE
     Dosage: DAILY DOSE INCREASED TO 10 MG AND THEN REDUCED BACK TO 7 MG.
     Route: 065
  13. IRBESARTAN. [Concomitant]
     Active Substance: IRBESARTAN
     Route: 048

REACTIONS (13)
  - Septic shock [Unknown]
  - Blood electrolytes abnormal [Unknown]
  - Intestinal perforation [Unknown]
  - Abdominal sepsis [Unknown]
  - Rheumatoid arthritis [Unknown]
  - Wound complication [Unknown]
  - Asthenia [Unknown]
  - Chronic obstructive pulmonary disease [Unknown]
  - Diverticular perforation [Unknown]
  - Hypertension [Unknown]
  - Diverticulitis [Not Recovered/Not Resolved]
  - Liver function test abnormal [Unknown]
  - Immunodeficiency [Unknown]

NARRATIVE: CASE EVENT DATE: 20161102
